FAERS Safety Report 18322253 (Version 1)
Quarter: 2020Q3

REPORT INFORMATION
  Report Type: Spontaneous
  Country: IN (occurrence: IN)
  Receive Date: 20200928
  Receipt Date: 20200928
  Transmission Date: 20201103
  Serious: Yes (Other)
  Sender: FDA-Public Use
  Company Number: IN-ASTRAZENECA-2020SF24225

PATIENT
  Age: 22772 Day
  Sex: Female

DRUGS (7)
  1. CRESTOR [Suspect]
     Active Substance: ROSUVASTATIN CALCIUM
     Indication: PERCUTANEOUS CORONARY INTERVENTION
     Route: 048
     Dates: start: 20200904, end: 20200913
  2. DLAVIX [Concomitant]
     Route: 048
  3. ECOSPRIN 150 [Concomitant]
     Dosage: DAILY
     Route: 048
     Dates: start: 20200904
  4. PAN 40 [Concomitant]
     Dosage: DAILY
  5. GALVUS MET [Concomitant]
     Active Substance: METFORMIN HYDROCHLORIDE\VILDAGLIPTIN
     Dosage: 5/500 DAILY
     Route: 048
  6. DIAMICRON [Concomitant]
     Active Substance: GLICLAZIDE
     Dosage: 30 DAILY
     Route: 048
  7. CARTINEX 500 [Concomitant]
     Route: 048

REACTIONS (2)
  - Blood creatinine increased [Recovered/Resolved]
  - Rhabdomyolysis [Recovered/Resolved]

NARRATIVE: CASE EVENT DATE: 20200904
